FAERS Safety Report 21171771 (Version 1)
Quarter: 2022Q3

REPORT INFORMATION
  Report Type: Spontaneous
  Country: US (occurrence: US)
  Receive Date: 20220804
  Receipt Date: 20220804
  Transmission Date: 20221026
  Serious: Yes (Other)
  Sender: FDA-Public Use
  Company Number: US-PFIZER INC-PV202200034227

PATIENT
  Age: 14 Year
  Sex: Male

DRUGS (1)
  1. VINCRISTINE SULFATE [Suspect]
     Active Substance: VINCRISTINE SULFATE
     Indication: T-cell type acute leukaemia
     Dosage: UNK

REACTIONS (4)
  - Inappropriate antidiuretic hormone secretion [Unknown]
  - Tumour lysis syndrome [Unknown]
  - Refeeding syndrome [Unknown]
  - Malnutrition [Unknown]
